FAERS Safety Report 19894525 (Version 2)
Quarter: 2021Q4

REPORT INFORMATION
  Report Type: Spontaneous
  Country: GB (occurrence: GB)
  Receive Date: 20210929
  Receipt Date: 20211019
  Transmission Date: 20220303
  Serious: Yes (Death, Other)
  Sender: FDA-Public Use
  Company Number: GB-BRISTOL-MYERS SQUIBB COMPANY-BMS-2021-097610

PATIENT
  Age: 78 Year
  Sex: Male

DRUGS (10)
  1. NIVOLUMAB [Suspect]
     Active Substance: NIVOLUMAB
     Indication: Mesothelioma
     Dosage: 360 MILLIGRAM, Q3WK
     Route: 042
     Dates: start: 20210701, end: 20210831
  2. IPILIMUMAB [Suspect]
     Active Substance: IPILIMUMAB
     Indication: Mesothelioma
     Dosage: 85 MILLIGRAM, Q6WK
     Route: 042
     Dates: start: 20210701, end: 20210831
  3. ALBUTEROL [Concomitant]
     Active Substance: ALBUTEROL
     Indication: Mesothelioma
     Dosage: 100 MICROGRAM QDS PRN LT
  4. BECLOMETHASONE [Concomitant]
     Active Substance: BECLOMETHASONE
     Indication: Mesothelioma
     Dosage: 100 MICROGRAM BD LT
  5. DOXAZOSIN [Concomitant]
     Active Substance: DOXAZOSIN MESYLATE
     Indication: Blood pressure abnormal
     Dosage: 2 MILLIGRAM OD LT
     Route: 048
  6. NIZATIDINE [Concomitant]
     Active Substance: NIZATIDINE
     Indication: Product used for unknown indication
     Dosage: 150 MG BD LT
     Route: 048
  7. ACETAMINOPHEN [Concomitant]
     Active Substance: ACETAMINOPHEN
     Indication: Pain
     Dosage: 1 GRAM QDS PRN
     Route: 048
     Dates: start: 202108
  8. MORPHINE SULFATE [Concomitant]
     Active Substance: MORPHINE SULFATE
     Indication: Pain
     Dosage: 5-10 MG 4-6 PRN
     Route: 048
     Dates: start: 202108
  9. METOCLOPRAMIDE [Concomitant]
     Active Substance: METOCLOPRAMIDE
     Indication: Nausea
     Dosage: 10 MG TDS PRN
     Route: 048
     Dates: start: 202108
  10. LOPERAMIDE [Concomitant]
     Active Substance: LOPERAMIDE
     Indication: Diarrhoea
     Dosage: 2 MG QDS PRN
     Route: 048
     Dates: start: 202108

REACTIONS (1)
  - Malignant neoplasm progression [Fatal]

NARRATIVE: CASE EVENT DATE: 20210815
